FAERS Safety Report 6573783-2 (Version None)
Quarter: 2010Q1

REPORT INFORMATION
  Report Type: 
  Country: None (occurrence: None)
  Receive Date: 20100208
  Receipt Date: 20100201
  Transmission Date: 20100710
  Serious: Yes (Other)
  Sender: FDA-Public Use
  Company Number: GXKR2010US01376

PATIENT
  Age: 60 Year
  Sex: Female

DRUGS (1)
  1. ALENDRONIC ACID (NGX) [Suspect]

REACTIONS (3)
  - FEMUR FRACTURE [None]
  - INTERNAL FIXATION OF FRACTURE [None]
  - STRESS FRACTURE [None]
